FAERS Safety Report 7062721-4 (Version None)
Quarter: 2010Q4

REPORT INFORMATION
  Report Type: 
  Country: None (occurrence: None)
  Receive Date: 20101026
  Receipt Date: 20091201
  Transmission Date: 20110411
  Serious: No
  Sender: FDA-Public Use
  Company Number: US-PFIZER INC-2009306702

PATIENT
  Sex: Male
  Weight: 79.4 kg

DRUGS (2)
  1. LIPITOR [Suspect]
     Indication: BLOOD CHOLESTEROL INCREASED
     Dates: end: 20091130
  2. PROZAC [Concomitant]
     Dosage: UNK

REACTIONS (1)
  - RASH [None]
